FAERS Safety Report 24158139 (Version 1)
Quarter: 2024Q3

REPORT INFORMATION
  Report Type: Spontaneous
  Country: US (occurrence: None)
  Receive Date: 20240731
  Receipt Date: 20240731
  Transmission Date: 20241016
  Serious: Yes (Death)
  Sender: Public
  Company Number: None

PATIENT
  Age: 63 Year
  Sex: Male
  Weight: 123.2 kg

DRUGS (1)
  1. INFED [Suspect]
     Active Substance: IRON DEXTRAN
     Indication: Iron deficiency anaemia
     Dosage: 25 MG  ONCE INTRAVENOUS ?
     Route: 042
     Dates: start: 20240730, end: 20240730

REACTIONS (3)
  - Anaphylactic shock [None]
  - Pulseless electrical activity [None]
  - Infusion related reaction [None]

NARRATIVE: CASE EVENT DATE: 20240730
